FAERS Safety Report 7578136-6 (Version None)
Quarter: 2011Q2

REPORT INFORMATION
  Report Type: 
  Country: None (occurrence: None)
  Receive Date: 20110628
  Receipt Date: 20110607
  Transmission Date: 20111010
  Serious: Yes (Hospitalization)
  Sender: FDA-Public Use
  Company Number: A0870729A

PATIENT
  Age: 71 Year
  Sex: Male
  Weight: 109.1 kg

DRUGS (7)
  1. STARLIX [Concomitant]
  2. LOPID [Concomitant]
  3. AMBIEN [Concomitant]
  4. GABAPENTIN [Concomitant]
  5. ACIPHEX [Concomitant]
  6. CYMBALTA [Concomitant]
  7. AVANDIA [Suspect]
     Indication: TYPE 2 DIABETES MELLITUS
     Dosage: 8MG PER DAY
     Route: 048
     Dates: start: 19990101, end: 20090101

REACTIONS (4)
  - CORONARY ARTERY DISEASE [None]
  - CEREBROVASCULAR ACCIDENT [None]
  - CARDIOMEGALY [None]
  - MYOCARDIAL INFARCTION [None]
